FAERS Safety Report 23971639 (Version 2)
Quarter: 2024Q2

REPORT INFORMATION
  Report Type: Spontaneous
  Country: US (occurrence: US)
  Receive Date: 20240613
  Receipt Date: 20240614
  Transmission Date: 20240716
  Serious: No
  Sender: FDA-Public Use
  Company Number: US-TEVA-VS-3206030

PATIENT
  Sex: Female

DRUGS (1)
  1. ARMODAFINIL [Suspect]
     Active Substance: ARMODAFINIL
     Indication: Attention deficit hyperactivity disorder
     Dosage: ARMODAFINIL 250 MG ONCE PER DAY
     Route: 065

REACTIONS (4)
  - Hypersensitivity [Unknown]
  - Swollen tongue [Recovered/Resolved]
  - Oral mucosal blistering [Recovered/Resolved]
  - Dyspnoea [Recovered/Resolved]
